FAERS Safety Report 4477288-4 (Version None)
Quarter: 2004Q4

REPORT INFORMATION
  Report Type: 
  Country: None (occurrence: None)
  Receive Date: 20041013
  Receipt Date: 20040930
  Transmission Date: 20050328
  Serious: Yes (Hospitalization)
  Sender: FDA-Public Use
  Company Number: A01200404877

PATIENT
  Sex: Male

DRUGS (4)
  1. PLAVIX [Suspect]
     Indication: CEREBROVASCULAR DISORDER
     Dosage: 75 MG QD, ORAL
     Route: 048
  2. RAMIPRIL [Concomitant]
  3. DIURETICS [Concomitant]
  4. ASPIRIN [Concomitant]

REACTIONS (3)
  - ANAEMIA [None]
  - MYELODYSPLASTIC SYNDROME [None]
  - RETICULOCYTE COUNT INCREASED [None]
